FAERS Safety Report 6242857-8 (Version None)
Quarter: 2009Q2

REPORT INFORMATION
  Report Type: 
  Country: None (occurrence: None)
  Receive Date: 20090624
  Receipt Date: 20090616
  Transmission Date: 20091009
  Serious: Yes (Hospitalization)
  Sender: FDA-Public Use
  Company Number: B0575519A

PATIENT
  Sex: Female

DRUGS (6)
  1. VALTREX [Suspect]
     Indication: HERPES ZOSTER
     Dosage: 1000MG THREE TIMES PER DAY
     Route: 048
     Dates: start: 20090510, end: 20090515
  2. VOLTAREN [Concomitant]
     Dosage: 75MG PER DAY
     Route: 048
     Dates: start: 20090510, end: 20090513
  3. MUCOSTA [Concomitant]
     Dosage: 300MG PER DAY
     Route: 048
     Dates: start: 20090510, end: 20090513
  4. LOXONIN [Concomitant]
     Route: 048
     Dates: end: 20090513
  5. SELBEX [Concomitant]
     Route: 048
     Dates: start: 20090513
  6. ALLEGRA [Concomitant]
     Route: 048
     Dates: start: 20090513

REACTIONS (2)
  - ILL-DEFINED DISORDER [None]
  - RENAL FAILURE ACUTE [None]
